FAERS Safety Report 8974418 (Version 2)
Quarter: 2013Q1

REPORT INFORMATION
  Report Type: Spontaneous
  Country: US (occurrence: None)
  Receive Date: 20121211
  Receipt Date: 20121221
  Transmission Date: 20140127
  Serious: Yes (Hospitalization)
  Sender: FDA-Public Use
  Company Number: UTC-026383

PATIENT
  Age: 71 Year
  Sex: Female
  Weight: 96.36 kg

DRUGS (2)
  1. REMODULIN (10 MILLIGRAM/MILLILITERS, INJECTION FOR INFUSION) (TREPROSTINIL SODIUM) [Suspect]
     Indication: PULMONARY ARTERIAL HYPERTENSION
     Dosage: 125.28 UG/KG (0.087 UG/KG, 1 IN 1 MIN),INTRAVENOUS DRIP
     Route: 041
     Dates: start: 20080527
  2. TRACLEER (BOSENTAN) [Concomitant]

REACTIONS (10)
  - Injection site swelling [None]
  - Injection site pain [None]
  - Injection site haemorrhage [None]
  - Injection site pustule [None]
  - Injection site induration [None]
  - Injection site irritation [None]
  - Injection site erythema [None]
  - Injection site discharge [None]
  - Influenza [None]
  - Injection site infection [None]
